FAERS Safety Report 7627569-8 (Version None)
Quarter: 2011Q3

REPORT INFORMATION
  Report Type: 
  Country: None (occurrence: None)
  Receive Date: 20110721
  Receipt Date: 20110523
  Transmission Date: 20111222
  Serious: No
  Sender: FDA-Public Use
  Company Number: US-BAYER-2011-045019

PATIENT
  Age: 90 Year
  Sex: Female
  Weight: 45 kg

DRUGS (7)
  1. CALCIUM [CALCIUM] [Concomitant]
  2. DETROL [Concomitant]
  3. ONE-A-DAY ESSENTIAL [Concomitant]
  4. ALEVE (CAPLET) [Suspect]
     Indication: ARTHRITIS
     Dosage: 2 DF, BID
     Route: 048
     Dates: start: 20080101
  5. LEVOTHROID [Concomitant]
  6. ZIAC [Concomitant]
  7. VERAPAMIL [Concomitant]

REACTIONS (1)
  - ARTHRITIS [None]
